FAERS Safety Report 4888202-1 (Version None)
Quarter: 2006Q1

REPORT INFORMATION
  Report Type: 
  Country: None (occurrence: None)
  Receive Date: 20060123
  Receipt Date: 20060111
  Transmission Date: 20060701
  Serious: Yes (Hospitalization)
  Sender: FDA-Public Use
  Company Number: FR-BRISTOL-MYERS SQUIBB COMPANY-13247309

PATIENT
  Age: 61 Year
  Sex: Male
  Weight: 100 kg

DRUGS (6)
  1. AMIKLIN INJ 500 MG [Suspect]
     Route: 042
     Dates: start: 20051207, end: 20051215
  2. TAZOCILLINE [Suspect]
     Dosage: DOSAGE 4 G/500 MG
     Route: 042
     Dates: start: 20051207, end: 20051213
  3. LASILIX [Suspect]
     Dates: start: 20051209, end: 20051215
  4. OXEOL [Concomitant]
     Dates: start: 20051207
  5. TRIATEC [Concomitant]
     Dates: start: 20051012
  6. INSULATARD NPH HUMAN [Concomitant]

REACTIONS (3)
  - PRURITUS [None]
  - PURPURA [None]
  - RASH ERYTHEMATOUS [None]
